FAERS Safety Report 18192223 (Version 14)
Quarter: 2025Q1

REPORT INFORMATION
  Report Type: Spontaneous
  Country: US (occurrence: US)
  Receive Date: 20200825
  Receipt Date: 20250303
  Transmission Date: 20250409
  Serious: Yes (Other)
  Sender: PFIZER
  Company Number: US-PFIZER INC-2020233356

PATIENT
  Age: 70 Year
  Sex: Female

DRUGS (2)
  1. IBRANCE [Suspect]
     Active Substance: PALBOCICLIB
     Indication: Breast cancer female
     Route: 048
     Dates: start: 20200823
  2. IBRANCE [Suspect]
     Active Substance: PALBOCICLIB
     Route: 048

REACTIONS (8)
  - Neutropenia [Unknown]
  - Madarosis [Unknown]
  - Hyperchlorhydria [Unknown]
  - Alopecia [Unknown]
  - Lacrimation increased [Unknown]
  - White blood cell count decreased [Unknown]
  - Decreased appetite [Unknown]
  - Diarrhoea [Unknown]
